FAERS Safety Report 24464003 (Version 1)
Quarter: 2024Q4

REPORT INFORMATION
  Report Type: Report from Study
  Country: US (occurrence: US)
  Receive Date: 20241018
  Receipt Date: 20241018
  Transmission Date: 20250115
  Serious: No
  Sender: ROCHE
  Company Number: US-ROCHE-3490641

PATIENT
  Age: 71 Year
  Sex: Female
  Weight: 84.0 kg

DRUGS (9)
  1. XOLAIR [Suspect]
     Active Substance: OMALIZUMAB
     Indication: Asthma
     Route: 058
  2. ALBUTEROL SULFATE [Concomitant]
     Active Substance: ALBUTEROL SULFATE
     Dosage: 2 PUFF
     Route: 055
     Dates: start: 20230622
  3. CEPHALEXIN [Concomitant]
     Active Substance: CEPHALEXIN
     Dosage: 1 TABLET TWICE DAILY, MONDAY, WEDNESDAY, FRIDAY ONLY.
     Dates: start: 20230811
  4. CLARINEX [Concomitant]
     Active Substance: DESLORATADINE
     Dates: start: 20111111
  5. DESLORATADINE [Concomitant]
     Active Substance: DESLORATADINE
     Dates: start: 20231219
  6. METOPROLOL TARTRATE [Concomitant]
     Active Substance: METOPROLOL TARTRATE
     Dates: start: 20201027
  7. MONTELUKAST [Concomitant]
     Active Substance: MONTELUKAST
     Dates: start: 20230329
  8. SPIRIVA [Concomitant]
     Active Substance: TIOTROPIUM BROMIDE MONOHYDRATE
     Dosage: 18 MCG
     Dates: start: 20180104
  9. XOPENEX [Concomitant]
     Active Substance: LEVALBUTEROL HYDROCHLORIDE
     Dosage: 1.25 MG/3ML
     Dates: start: 20111111

REACTIONS (3)
  - Pain [Unknown]
  - Sinusitis [Unknown]
  - Fatigue [Unknown]
